FAERS Safety Report 6023026-3 (Version None)
Quarter: 2008Q4

REPORT INFORMATION
  Report Type: 
  Country: None (occurrence: None)
  Receive Date: 20081230
  Receipt Date: 20081223
  Transmission Date: 20090506
  Serious: Yes (Death)
  Sender: FDA-Public Use
  Company Number: US-ASTRAZENECA-2008AC03434

PATIENT
  Age: 48 Year
  Sex: Male

DRUGS (6)
  1. LISINOPRIL [Suspect]
     Route: 048
  2. LITHIUM [Suspect]
     Route: 048
  3. ALLOPURINOL [Suspect]
     Route: 048
  4. SIMVASTATIN [Suspect]
     Route: 048
  5. EZETIMIBE [Suspect]
     Route: 048
  6. METFORMIN HCL [Suspect]
     Route: 048

REACTIONS (1)
  - DEATH [None]
